FAERS Safety Report 8801720 (Version 1)
Quarter: 2012Q4

REPORT INFORMATION
  Report Type: 
  Country: US (occurrence: US)
  Receive Date: 20120921
  Receipt Date: 20120921
  Transmission Date: 20130627
  Serious: No
  Sender: FDA-Public Use
  Company Number: US-PFIZER INC-2012232137

PATIENT
  Sex: Female

DRUGS (2)
  1. CHANTIX [Suspect]
     Dosage: UNK
     Dates: end: 20111003
  2. CHANTIX [Suspect]
     Dosage: UNK
     Dates: start: 20120806

REACTIONS (2)
  - Sleep disorder [Unknown]
  - Nightmare [Unknown]
